FAERS Safety Report 10229606 (Version 4)
Quarter: 2014Q4

REPORT INFORMATION
  Report Type: Report from Study
  Country: US (occurrence: None)
  Receive Date: 20140609
  Receipt Date: 20141202
  Transmission Date: 20150528
  Serious: Yes (Hospitalization)
  Sender: FDA-Public Use
  Company Number: 2374358

PATIENT
  Age: 35 Year
  Sex: Male
  Weight: 95.5 kg

DRUGS (6)
  1. FUROSEMIDE. [Concomitant]
     Active Substance: FUROSEMIDE
  2. GEMCITABINE [Suspect]
     Active Substance: GEMCITABINE\GEMCITABINE HYDROCHLORIDE
     Indication: SARCOMA METASTATIC
     Dosage: (CYCLICAL)
     Route: 041
     Dates: start: 20140115, end: 20140723
  3. GEMCITABINE [Suspect]
     Active Substance: GEMCITABINE\GEMCITABINE HYDROCHLORIDE
     Dosage: (CYCLICAL)
     Route: 041
     Dates: start: 20140115, end: 20140723
  4. INVESTIGATIONAL DRUG [Suspect]
     Active Substance: INVESTIGATIONAL PRODUCT
     Dosage: (CYCLICAL)
     Route: 041
     Dates: start: 20140115, end: 20140723
  5. INVESTIGATIONAL DRUG [Suspect]
     Active Substance: INVESTIGATIONAL PRODUCT
     Indication: SOFT TISSUE DISORDER
     Dosage: (CYCLICAL)
     Route: 041
     Dates: start: 20140115, end: 20140723
  6. DOCETAXEL. [Suspect]
     Active Substance: DOCETAXEL
     Indication: SOFT TISSUE DISORDER
     Dosage: CYCLICAL
     Route: 041
     Dates: start: 20140122, end: 20140723

REACTIONS (10)
  - Haematocrit decreased [None]
  - Alanine aminotransferase increased [None]
  - Red blood cell count decreased [None]
  - Eosinophil count decreased [None]
  - Neutrophil count increased [None]
  - Aspartate aminotransferase increased [None]
  - Haemoglobin decreased [None]
  - Lymphocyte count decreased [None]
  - Pericardial effusion [None]
  - Thrombocytopenia [None]

NARRATIVE: CASE EVENT DATE: 20140514
